FAERS Safety Report 5071628-3 (Version None)
Quarter: 2006Q3

REPORT INFORMATION
  Report Type: 
  Country: None (occurrence: None)
  Receive Date: 20060804
  Receipt Date: 20060731
  Transmission Date: 20061208
  Serious: Yes (Hospitalization)
  Sender: FDA-Public Use
  Company Number: US-MERCK-0608USA00216

PATIENT
  Sex: Male

DRUGS (1)
  1. ZETIA [Suspect]
     Indication: BLOOD CHOLESTEROL
     Route: 048
     Dates: start: 20060501, end: 20060701

REACTIONS (2)
  - INAPPROPRIATE SCHEDULE OF DRUG ADMINISTRATION [None]
  - PANCREATIC ENZYMES INCREASED [None]
